FAERS Safety Report 8138669-0 (Version None)
Quarter: 2012Q1

REPORT INFORMATION
  Report Type: 
  Country: None (occurrence: None)
  Receive Date: 20120215
  Receipt Date: 20120213
  Transmission Date: 20120608
  Serious: Yes (Death)
  Sender: FDA-Public Use
  Company Number: CN-ROCHE-1037418

PATIENT
  Age: 58 Year
  Sex: Female
  Weight: 50 kg

DRUGS (4)
  1. ROCEPHIN [Suspect]
     Indication: BRONCHITIS CHRONIC
     Route: 041
     Dates: start: 20120203, end: 20120203
  2. METHYLPREDNISOLONE SODIUM SUCCINATE [Concomitant]
     Indication: BRONCHITIS CHRONIC
     Route: 041
     Dates: start: 20120203, end: 20120203
  3. SODIUM CHLORIDE 0.9% [Suspect]
     Indication: BRONCHITIS CHRONIC
     Route: 041
     Dates: start: 20120203, end: 20120203
  4. DIPROPHYLLINE [Concomitant]
     Indication: BRONCHITIS CHRONIC
     Route: 041
     Dates: start: 20120203, end: 20120203

REACTIONS (1)
  - ANAPHYLACTIC SHOCK [None]
